FAERS Safety Report 5788262-X (Version None)
Quarter: 2008Q2

REPORT INFORMATION
  Report Type: 
  Country: None (occurrence: None)
  Receive Date: 20080625
  Receipt Date: 20080606
  Transmission Date: 20081010
  Serious: Yes (Hospitalization)
  Sender: FDA-Public Use
  Company Number: FR-PFIZER INC-2006072196

PATIENT
  Sex: Female
  Weight: 54 kg

DRUGS (2)
  1. SU-011,248 [Suspect]
     Indication: HEPATIC NEOPLASM MALIGNANT NON-RESECTABLE
     Route: 048
     Dates: start: 20060505, end: 20060601
  2. URSODIOL [Concomitant]
     Route: 048

REACTIONS (4)
  - ANAEMIA [None]
  - PELVIC PAIN [None]
  - PERITONEAL EFFUSION [None]
  - PERITONEAL HAEMORRHAGE [None]
